FAERS Safety Report 12840335 (Version 1)
Quarter: 2016Q4

REPORT INFORMATION
  Report Type: Spontaneous
  Country: FR (occurrence: FR)
  Receive Date: 20161012
  Receipt Date: 20161012
  Transmission Date: 20170207
  Serious: Yes (Hospitalization, Other)
  Sender: FDA-Public Use
  Company Number: FR-ELI_LILLY_AND_COMPANY-FR201610001185

PATIENT
  Age: 59 Year
  Sex: Female
  Weight: 51 kg

DRUGS (4)
  1. GEMZAR [Suspect]
     Active Substance: GEMCITABINE HYDROCHLORIDE
     Indication: BREAST CANCER METASTATIC
     Dosage: 1680 MG, CYCLICAL
     Route: 065
     Dates: start: 20150814, end: 20150915
  2. TAXOTERE [Suspect]
     Active Substance: DOCETAXEL
     Indication: BREAST CANCER METASTATIC
     Dosage: 83.5 MG, CYCLICAL
     Route: 065
  3. XGEVA [Concomitant]
     Active Substance: DENOSUMAB
     Indication: PRODUCT USED FOR UNKNOWN INDICATION
     Dosage: D1, D8, D15, D29 THEN EVERY 4 WEEKS
     Route: 058
     Dates: start: 20150929
  4. LEVOTHYROX [Concomitant]
     Active Substance: LEVOTHYROXINE
     Indication: HYPOTHYROIDISM
     Dosage: UNK, UNKNOWN
     Route: 065

REACTIONS (7)
  - General physical health deterioration [Unknown]
  - Hypercalcaemia of malignancy [Unknown]
  - Off label use [Unknown]
  - Renal impairment [Unknown]
  - Weight decreased [Unknown]
  - Asthenia [Unknown]
  - Hepatocellular injury [Recovered/Resolved]

NARRATIVE: CASE EVENT DATE: 20150818
